APPROVED DRUG PRODUCT: GATIFLOXACIN
Active Ingredient: GATIFLOXACIN
Strength: 0.5%
Dosage Form/Route: SOLUTION/DROPS;OPHTHALMIC
Application: A203189 | Product #001
Applicant: HIKMA PHARMACEUTICALS USA INC
Approved: Sep 3, 2014 | RLD: No | RS: No | Type: DISCN